FAERS Safety Report 5654988-1 (Version None)
Quarter: 2008Q1

REPORT INFORMATION
  Report Type: 
  Country: None (occurrence: None)
  Receive Date: 20080307
  Receipt Date: 20071010
  Transmission Date: 20080703
  Serious: No
  Sender: FDA-Public Use
  Company Number: A0687209A

PATIENT
  Sex: Male

DRUGS (2)
  1. REQUIP [Suspect]
     Indication: RESTLESS LEGS SYNDROME
     Dosage: 1MG FOUR TIMES PER DAY
     Route: 048
  2. CARBIDOPA AND LEVODOPA [Concomitant]

REACTIONS (3)
  - PAIN [None]
  - RESTLESS LEGS SYNDROME [None]
  - SLEEP DISORDER [None]
